FAERS Safety Report 7464519-1 (Version None)
Quarter: 2011Q2

REPORT INFORMATION
  Report Type: 
  Country: None (occurrence: None)
  Receive Date: 20110428
  Receipt Date: 20110425
  Transmission Date: 20111010
  Serious: Yes (Hospitalization, Other)
  Sender: FDA-Public Use
  Company Number: 20109774

PATIENT
  Sex: Female

DRUGS (1)
  1. LIORESAL [Suspect]
     Indication: MUSCLE SPASTICITY
     Dosage: SEE B5 MCG, DAILY, INTRATHECAL
     Route: 037

REACTIONS (5)
  - BACK PAIN [None]
  - THERAPEUTIC RESPONSE DECREASED [None]
  - MUSCLE SPASTICITY [None]
  - MUSCLE SPASMS [None]
  - IMPLANT SITE EFFUSION [None]
